FAERS Safety Report 25069650 (Version 1)
Quarter: 2025Q1

REPORT INFORMATION
  Report Type: Spontaneous
  Country: PT (occurrence: PT)
  Receive Date: 20250312
  Receipt Date: 20250312
  Transmission Date: 20250409
  Serious: Yes (Hospitalization, Other)
  Sender: MYLAN
  Company Number: None

PATIENT
  Age: 45 Year
  Sex: Female

DRUGS (12)
  1. DYMISTA [Suspect]
     Active Substance: AZELASTINE HYDROCHLORIDE\FLUTICASONE PROPIONATE
     Indication: Nasal septum deviation
     Dosage: 2 DOSAGE FORM, BID (1 APPLICATION IN EACH NOSTRIL)
     Route: 045
     Dates: start: 20241226, end: 20241227
  2. DYMISTA [Suspect]
     Active Substance: AZELASTINE HYDROCHLORIDE\FLUTICASONE PROPIONATE
     Dosage: 2 DOSAGE FORM, BID (1 APPLICATION IN EACH NOSTRIL)
     Dates: start: 20241226, end: 20241227
  3. DYMISTA [Suspect]
     Active Substance: AZELASTINE HYDROCHLORIDE\FLUTICASONE PROPIONATE
     Dosage: 2 DOSAGE FORM, BID (1 APPLICATION IN EACH NOSTRIL)
     Dates: start: 20241226, end: 20241227
  4. DYMISTA [Suspect]
     Active Substance: AZELASTINE HYDROCHLORIDE\FLUTICASONE PROPIONATE
     Dosage: 2 DOSAGE FORM, BID (1 APPLICATION IN EACH NOSTRIL)
     Route: 045
     Dates: start: 20241226, end: 20241227
  5. DYMISTA [Suspect]
     Active Substance: AZELASTINE HYDROCHLORIDE\FLUTICASONE PROPIONATE
     Dosage: 2 DOSAGE FORM, BID (1 APPLICATION IN EACH NOSTRIL AT NIGHT)
     Route: 045
     Dates: start: 20241230, end: 20241231
  6. DYMISTA [Suspect]
     Active Substance: AZELASTINE HYDROCHLORIDE\FLUTICASONE PROPIONATE
     Dosage: 2 DOSAGE FORM, BID (1 APPLICATION IN EACH NOSTRIL AT NIGHT)
     Dates: start: 20241230, end: 20241231
  7. DYMISTA [Suspect]
     Active Substance: AZELASTINE HYDROCHLORIDE\FLUTICASONE PROPIONATE
     Dosage: 2 DOSAGE FORM, BID (1 APPLICATION IN EACH NOSTRIL AT NIGHT)
     Dates: start: 20241230, end: 20241231
  8. DYMISTA [Suspect]
     Active Substance: AZELASTINE HYDROCHLORIDE\FLUTICASONE PROPIONATE
     Dosage: 2 DOSAGE FORM, BID (1 APPLICATION IN EACH NOSTRIL AT NIGHT)
     Route: 045
     Dates: start: 20241230, end: 20241231
  9. Estinette [Concomitant]
  10. Estinette [Concomitant]
     Route: 065
  11. Estinette [Concomitant]
     Route: 065
  12. Estinette [Concomitant]

REACTIONS (4)
  - Aura [Recovered/Resolved]
  - Hypoaesthesia [Recovered/Resolved]
  - Speech disorder [Recovered/Resolved]
  - Hypoaesthesia oral [Recovered/Resolved]

NARRATIVE: CASE EVENT DATE: 20241227
